FAERS Safety Report 8449801-3 (Version None)
Quarter: 2012Q2

REPORT INFORMATION
  Report Type: 
  Country: None (occurrence: None)
  Receive Date: 20120620
  Receipt Date: 20120612
  Transmission Date: 20120825
  Serious: Yes (Hospitalization, Other)
  Sender: FDA-Public Use
  Company Number: US-BAYER-200922409NA

PATIENT
  Age: 51 Year
  Sex: Male
  Weight: 88.435 kg

DRUGS (23)
  1. AVAPRO [Concomitant]
     Dosage: 300 MG, QD
     Route: 048
     Dates: start: 20030101
  2. NITROGLYCERIN [Concomitant]
     Dosage: 0.4 MG AS NEEDED
     Route: 048
     Dates: start: 20030101
  3. RED BLOOD CELLS [Concomitant]
     Dosage: 1 U, UNK
     Dates: start: 20030709
  4. PLAVIX [Concomitant]
     Dosage: 75 MG, QD
     Route: 048
     Dates: start: 20030101
  5. ASPIRIN [Concomitant]
     Dosage: 81 MG, QD
  6. FRESH FROZEN PLASMA [Concomitant]
     Dosage: 6 U, UNK
     Dates: start: 20030709
  7. DOPAMINE HCL [Concomitant]
     Dosage: UNK
     Route: 042
     Dates: start: 20030712
  8. LIPITOR [Concomitant]
     Dosage: 40 MG, QD
     Route: 048
     Dates: start: 20030101
  9. ZETIA [Concomitant]
     Dosage: 10 MG, QD
     Route: 048
     Dates: start: 20030101
  10. TRICOR [Concomitant]
     Dosage: 160 MG, QD
  11. LIDOCAINE [Concomitant]
     Dosage: UNK
     Dates: start: 20030709
  12. ISOSORBIDE MONONITRATE [Concomitant]
     Dosage: 100 MG, UNK
     Route: 048
     Dates: start: 20030101
  13. TOPROL-XL [Concomitant]
     Dosage: 100 MG, QD
     Route: 048
     Dates: start: 20030101
  14. TOPROL-XL [Concomitant]
     Dosage: 100 MG, QD
  15. VERSED [Concomitant]
     Dosage: UNK
     Dates: start: 20030709
  16. VASOPRESSIN [Concomitant]
     Dosage: UNK
     Dates: start: 20030709
  17. LASIX [Concomitant]
     Dosage: UNK
     Route: 042
     Dates: start: 20030712
  18. TRASYLOL [Suspect]
     Indication: CORONARY ARTERY BYPASS
     Dosage: 100 CC THEN 25 CC/HOUR
     Route: 042
     Dates: start: 20030709, end: 20030709
  19. AVANDIA [Concomitant]
     Dosage: 80 MG, QD
     Route: 048
     Dates: start: 20030101
  20. HEPARIN [Concomitant]
     Dosage: UNK
     Dates: start: 20030709
  21. INSULIN [Concomitant]
     Dosage: UNK
     Dates: start: 20030709
  22. PLASMALYTE [GLUCOSE,POTASSIUM CHLORIDE] [Concomitant]
     Dosage: UNK
     Dates: start: 20030709
  23. PLATELETS [Concomitant]
     Dosage: 1 U, UNK
     Dates: start: 20030709

REACTIONS (12)
  - EMOTIONAL DISTRESS [None]
  - MULTI-ORGAN FAILURE [None]
  - PAIN [None]
  - ANHEDONIA [None]
  - INJURY [None]
  - UNEVALUABLE EVENT [None]
  - RENAL IMPAIRMENT [None]
  - ANXIETY [None]
  - FEAR [None]
  - RENAL INJURY [None]
  - RENAL FAILURE [None]
  - STRESS [None]
